FAERS Safety Report 25710386 (Version 1)
Quarter: 2025Q3

REPORT INFORMATION
  Report Type: Spontaneous
  Country: US (occurrence: US)
  Receive Date: 20250821
  Receipt Date: 20250821
  Transmission Date: 20251021
  Serious: No
  Sender: MYLAN
  Company Number: US-MYLANLABS-2025M1069173

PATIENT
  Sex: Female

DRUGS (3)
  1. TYRVAYA [Suspect]
     Active Substance: VARENICLINE TARTRATE
     Indication: Product used for unknown indication
  2. TYRVAYA [Suspect]
     Active Substance: VARENICLINE TARTRATE
  3. TYRVAYA [Suspect]
     Active Substance: VARENICLINE TARTRATE

REACTIONS (2)
  - COVID-19 [Unknown]
  - Nasal discomfort [Unknown]
